FAERS Safety Report 5485991-2 (Version None)
Quarter: 2007Q4

REPORT INFORMATION
  Report Type: 
  Country: None (occurrence: None)
  Receive Date: 20071015
  Receipt Date: 20071010
  Transmission Date: 20080405
  Serious: Yes (Death)
  Sender: FDA-Public Use
  Company Number: AU-GILEAD-2007-0013753

PATIENT

DRUGS (2)
  1. HEPSERA [Suspect]
     Indication: HEPATITIS B
     Route: 048
  2. EPIVIR [Suspect]
     Indication: HEPATITIS B
     Route: 048

REACTIONS (1)
  - HEPATITIS [None]
